FAERS Safety Report 5292591-6 (Version None)
Quarter: 2007Q2

REPORT INFORMATION
  Report Type: 
  Country: None (occurrence: None)
  Receive Date: 20070404
  Receipt Date: 20070321
  Transmission Date: 20071010
  Serious: Yes (Hospitalization)
  Sender: FDA-Public Use
  Company Number: PAR_1462_2007

PATIENT
  Age: 7 Day
  Sex: Female
  Weight: 0.88 kg

DRUGS (2)
  1. IBUPROFEN [Suspect]
     Indication: PATENT DUCTUS ARTERIOSUS
     Dosage: DF UNK PO
     Route: 048
  2. AMINOGLYCOSIDE [Suspect]
     Dosage: DF UNK UNK

REACTIONS (2)
  - NEONATAL HYPONATRAEMIA [None]
  - RENAL FAILURE NEONATAL [None]
